FAERS Safety Report 6676020-3 (Version None)
Quarter: 2010Q2

REPORT INFORMATION
  Report Type: 
  Country: None (occurrence: None)
  Receive Date: 20100412
  Receipt Date: 20100330
  Transmission Date: 20101027
  Serious: No
  Sender: FDA-Public Use
  Company Number: 2009BI030903

PATIENT
  Age: 38 Year
  Sex: Female

DRUGS (1)
  1. TYSABRI [Suspect]
     Indication: MULTIPLE SCLEROSIS
     Route: 042
     Dates: start: 20090312

REACTIONS (5)
  - CHAPPED LIPS [None]
  - FATIGUE [None]
  - INFUSION SITE HAEMATOMA [None]
  - RASH [None]
  - STOMATITIS [None]
